FAERS Safety Report 4620242-X (Version None)
Quarter: 2005Q1

REPORT INFORMATION
  Report Type: 
  Country: None (occurrence: None)
  Receive Date: 20050322
  Receipt Date: 20050322
  Transmission Date: 20050727
  Serious: Yes (Other)
  Sender: FDA-Public Use
  Company Number: None

PATIENT
  Sex: Male
  Weight: 67.586 kg

DRUGS (3)
  1. ROXICET [Suspect]
     Indication: POST PROCEDURAL PAIN
     Dosage: ONE TAB Q8H ORAL
     Route: 048
     Dates: start: 20050317, end: 20050320
  2. ROXICET [Suspect]
     Indication: TOOTH EXTRACTION
     Dosage: ONE TAB Q8H ORAL
     Route: 048
     Dates: start: 20050317, end: 20050320
  3. BUPROPION HCL [Suspect]
     Indication: SMOKING CESSATION THERAPY
     Dosage: ONE TAB BID ORAL
     Route: 048
     Dates: start: 20050307, end: 20050501

REACTIONS (2)
  - RASH ERYTHEMATOUS [None]
  - RASH PRURITIC [None]
